FAERS Safety Report 4888114-3 (Version None)
Quarter: 2006Q1

REPORT INFORMATION
  Report Type: 
  Country: None (occurrence: None)
  Receive Date: 20060118
  Receipt Date: 20060102
  Transmission Date: 20060701
  Serious: Yes (Hospitalization)
  Sender: FDA-Public Use
  Company Number: FR-JNJFOC-20060100124

PATIENT
  Age: 28 Year
  Sex: Male

DRUGS (3)
  1. RISPERDAL CONSTA [Suspect]
     Indication: PSYCHOTIC DISORDER
     Dosage: 50 MG, INTRAMUSCULAR
     Route: 030
     Dates: start: 20050615, end: 20051006
  2. NOZINAN (LEVOMEPROMAZINE) [Concomitant]
  3. XANAX [Concomitant]

REACTIONS (3)
  - AGGRESSION [None]
  - CONDITION AGGRAVATED [None]
  - DELUSION [None]
